FAERS Safety Report 11656125 (Version 8)
Quarter: 2020Q3

REPORT INFORMATION
  Report Type: Report from Study
  Country: JP (occurrence: JP)
  Receive Date: 20151023
  Receipt Date: 20180502
  Transmission Date: 20201104
  Serious: Yes (Hospitalization)
  Sender: FDA-Public Use
  Company Number: JP-JNJFOC-20151008757

PATIENT
  Age: 73 Year
  Sex: Male
  Weight: 84.3 kg

DRUGS (10)
  1. PREDNISOLONE. [Suspect]
     Active Substance: PREDNISOLONE
     Indication: PROSTATE CANCER METASTATIC
     Dosage: MEDICATION KIT NUMBER: 111254
     Dates: start: 20150821, end: 20151009
  2. REBAMIPIDE [Concomitant]
     Active Substance: REBAMIPIDE
     Indication: CHRONIC GASTRITIS
     Dosage: DOSE: 100 (UNITS NOT REPORTED)
     Route: 048
     Dates: start: 20150520, end: 20151016
  3. MAGNESIUM OXIDE. [Concomitant]
     Active Substance: MAGNESIUM OXIDE
     Indication: CONSTIPATION
     Route: 048
     Dates: start: 20150919, end: 20151022
  4. LOXOPROFEN SODIUM [Concomitant]
     Active Substance: LOXOPROFEN SODIUM
     Indication: BACK PAIN
     Route: 048
     Dates: start: 20150520, end: 20151016
  5. PLACEBO [Suspect]
     Active Substance: UNSPECIFIED INGREDIENT
     Indication: PROSTATE CANCER METASTATIC
     Dosage: MEDICATION KIT NUMBER: 28485
     Route: 048
     Dates: start: 20150821, end: 20151009
  6. ABIRATERONE ACETATE. [Suspect]
     Active Substance: ABIRATERONE ACETATE
     Indication: PROSTATE CANCER METASTATIC
     Dosage: MEDICATION KIT NUMBER: 51014
     Route: 048
     Dates: start: 20150821, end: 20151009
  7. LEUPLIN [Concomitant]
     Active Substance: LEUPROLIDE ACETATE
     Indication: PROSTATE CANCER
     Route: 058
     Dates: start: 20150617
  8. SILODOSIN. [Concomitant]
     Active Substance: SILODOSIN
     Indication: DYSURIA
     Dosage: DOSE: 08 (UNITS NOT REPORTED)
     Route: 048
     Dates: start: 20110817
  9. KETOPROFEN. [Concomitant]
     Active Substance: KETOPROFEN
     Indication: BACK PAIN
     Route: 050
     Dates: start: 20150520
  10. ABIRATERONE ACETATE. [Suspect]
     Active Substance: ABIRATERONE ACETATE
     Route: 048

REACTIONS (1)
  - Diverticulum intestinal haemorrhagic [Recovering/Resolving]

NARRATIVE: CASE EVENT DATE: 20151011
